FAERS Safety Report 25600710 (Version 2)
Quarter: 2025Q3

REPORT INFORMATION
  Report Type: Spontaneous
  Country: JP (occurrence: JP)
  Receive Date: 20250724
  Receipt Date: 20250801
  Transmission Date: 20251021
  Serious: Yes (Other)
  Sender: UCB
  Company Number: JP-UCBJ-CD202509687UCBPHAPROD

PATIENT
  Age: 5 Decade
  Sex: Female

DRUGS (6)
  1. VIMPAT [Suspect]
     Active Substance: LACOSAMIDE
     Indication: Epilepsy
     Dosage: 200 MILLIGRAM, 2X/DAY (BID)
     Route: 048
  2. CARBAMAZEPINE [Concomitant]
     Active Substance: CARBAMAZEPINE
     Indication: Parietal lobe epilepsy
  3. PERAMPANEL [Concomitant]
     Active Substance: PERAMPANEL
     Indication: Parietal lobe epilepsy
  4. PHENOBARBITAL [Concomitant]
     Active Substance: PHENOBARBITAL
     Indication: Parietal lobe epilepsy
  5. CLONAZEPAM [Concomitant]
     Active Substance: CLONAZEPAM
     Indication: Parietal lobe epilepsy
  6. DIAZEPAM [Concomitant]
     Active Substance: DIAZEPAM
     Indication: Parietal lobe epilepsy

REACTIONS (5)
  - Drop attacks [Unknown]
  - Hemiparesis [Unknown]
  - Spinal cord injury [Unknown]
  - Hypoaesthesia [Unknown]
  - Therapeutic response decreased [Unknown]
